FAERS Safety Report 6744601-4 (Version None)
Quarter: 2010Q2

REPORT INFORMATION
  Report Type: 
  Country: None (occurrence: None)
  Receive Date: 20100527
  Receipt Date: 20100521
  Transmission Date: 20101027
  Serious: Yes (Hospitalization)
  Sender: FDA-Public Use
  Company Number: SE-AMGEN-KDC404361

PATIENT
  Sex: Female

DRUGS (6)
  1. PANITUMUMAB [Suspect]
     Indication: NEOPLASM MALIGNANT
  2. DOXORUBICIN HCL [Suspect]
  3. KABIVEN [Concomitant]
  4. TRAMADOL HCL [Concomitant]
  5. ZOLPIDEM [Concomitant]
  6. ENOXAPARIN SODIUM [Concomitant]

REACTIONS (1)
  - ILEUS [None]
